FAERS Safety Report 7593788-2 (Version None)
Quarter: 2011Q3

REPORT INFORMATION
  Report Type: 
  Country: None (occurrence: None)
  Receive Date: 20110706
  Receipt Date: 20110624
  Transmission Date: 20111222
  Serious: Yes (Hospitalization)
  Sender: FDA-Public Use
  Company Number: DE-UCBSA-019494

PATIENT
  Age: 60 Year
  Sex: Female

DRUGS (6)
  1. PREDNISOLONE [Concomitant]
     Dosage: IN THE MORNING
     Route: 048
  2. OMEPRAZOLE [Concomitant]
     Dosage: IN THE MORNING
     Route: 048
     Dates: start: 20100910
  3. PANTOPRAZOLE 2 [Concomitant]
     Route: 048
  4. CIMZIA [Suspect]
     Indication: RHEUMATOID ARTHRITIS
     Route: 058
     Dates: start: 20100318
  5. LEVOTHYROXINE SODIUM [Concomitant]
     Dosage: IN THE MORNING
     Route: 048
  6. HYDROXYCHLOROQUINE SULFATE [Concomitant]
     Route: 048
     Dates: start: 20060101

REACTIONS (2)
  - GASTROENTERITIS [None]
  - ANAEMIA [None]
